FAERS Safety Report 5926488-2 (Version None)
Quarter: 2008Q4

REPORT INFORMATION
  Report Type: 
  Country: None (occurrence: None)
  Receive Date: 20081022
  Receipt Date: 20081017
  Transmission Date: 20090506
  Serious: Yes (Other)
  Sender: FDA-Public Use
  Company Number: PHEH2008US08955

PATIENT
  Sex: Female
  Weight: 47.619 kg

DRUGS (8)
  1. TEKTURNA [Suspect]
     Indication: HYPERTENSION
     Dosage: 150 MG, QD
     Route: 048
     Dates: start: 20080904, end: 20081001
  2. PREDNISONE [Concomitant]
     Dosage: 7.5 UNK, QD
  3. ASPIRIN [Concomitant]
  4. FOLIC ACID [Concomitant]
  5. METHOTREXATE [Concomitant]
     Dosage: 7.5 UNK, QW
  6. HYDROCHLOROTHIAZIDE [Concomitant]
     Dosage: 12.5 MG, QD
  7. METOPROLOL TARTRATE [Concomitant]
     Dosage: 50 MG, QD
  8. POTASSIUM CHLORIDE [Concomitant]

REACTIONS (9)
  - BLOOD SODIUM DECREASED [None]
  - CONTUSION [None]
  - CONVULSION [None]
  - DIZZINESS [None]
  - HYPERTENSION [None]
  - INAPPROPRIATE ANTIDIURETIC HORMONE SECRETION [None]
  - INCONTINENCE [None]
  - LOSS OF CONSCIOUSNESS [None]
  - RAYNAUD'S PHENOMENON [None]
